FAERS Safety Report 14497998 (Version 7)
Quarter: 2018Q3

REPORT INFORMATION
  Report Type: Report from Study
  Country: JP (occurrence: JP)
  Receive Date: 20180207
  Receipt Date: 20180904
  Transmission Date: 20181010
  Serious: Yes (Death, Hospitalization, Other)
  Sender: FDA-Public Use
  Company Number: JP-JNJFOC-20180202411

PATIENT
  Age: 80 Year
  Sex: Female
  Weight: 56 kg

DRUGS (2)
  1. IMBRUVICA [Suspect]
     Active Substance: IBRUTINIB
     Indication: CHRONIC LYMPHOCYTIC LEUKAEMIA REFRACTORY
     Dosage: IBRUTINIB:140MG
     Route: 048
     Dates: start: 20161116, end: 20170508
  2. IMBRUVICA [Suspect]
     Active Substance: IBRUTINIB
     Indication: CHRONIC LYMPHOCYTIC LEUKAEMIA REFRACTORY
     Dosage: ADMNISTRATION OF 140MG ON EVERY OTHER DAY
     Route: 048
     Dates: start: 20170509, end: 20170617

REACTIONS (6)
  - White blood cell count increased [Recovered/Resolved]
  - Bone marrow failure [Recovering/Resolving]
  - Anaemia [Not Recovered/Not Resolved]
  - Chronic lymphocytic leukaemia refractory [Fatal]
  - Platelet count decreased [Not Recovered/Not Resolved]
  - Pneumonia [Not Recovered/Not Resolved]

NARRATIVE: CASE EVENT DATE: 20161213
